FAERS Safety Report 18259249 (Version 2)
Quarter: 2020Q4

REPORT INFORMATION
  Report Type: Spontaneous
  Country: US (occurrence: US)
  Receive Date: 20200911
  Receipt Date: 20201116
  Transmission Date: 20210113
  Serious: Yes (Death, Hospitalization, Other)
  Sender: FDA-Public Use
  Company Number: NVSC2020US247657

PATIENT
  Age: 58 Year
  Sex: Female

DRUGS (1)
  1. PROMACTA [Suspect]
     Active Substance: ELTROMBOPAG OLAMINE
     Indication: THROMBOCYTOPENIA
     Dosage: 50 MG, QD
     Route: 048
     Dates: start: 20200428, end: 2020

REACTIONS (5)
  - Plasma cell myeloma [Unknown]
  - Blood count abnormal [Unknown]
  - Death [Fatal]
  - Malignant neoplasm progression [Unknown]
  - Movement disorder [Unknown]

NARRATIVE: CASE EVENT DATE: 20201008
